FAERS Safety Report 18540876 (Version 3)
Quarter: 2020Q4

REPORT INFORMATION
  Report Type: Spontaneous
  Country: US (occurrence: US)
  Receive Date: 20201124
  Receipt Date: 20201201
  Transmission Date: 20210114
  Serious: No
  Sender: FDA-Public Use
  Company Number: US-PFIZER INC-2020252758

PATIENT
  Age: 74 Year
  Sex: Female
  Weight: 59.87 kg

DRUGS (3)
  1. VFEND [Suspect]
     Active Substance: VORICONAZOLE
     Indication: ASPERGILLUS INFECTION
     Dosage: 100 MG, 2X/DAY (VFEND 200MG - TAKE 0.5 TABLETS BY MOUTH EVERY 12 HOURS)
     Route: 048
  2. VFEND [Suspect]
     Active Substance: VORICONAZOLE
     Dosage: 6 DF, DAILY (6 PILLS DAILY)
     Dates: start: 202007
  3. VFEND [Suspect]
     Active Substance: VORICONAZOLE
     Indication: LUNG TRANSPLANT
     Dosage: 150 MG, 2X/DAY (STRENGTH: 50MG; TAKE 3 TABLETS BY MOUTH EVERY 12 HOURS)
     Route: 048

REACTIONS (6)
  - Product dispensing error [Unknown]
  - Dizziness [Unknown]
  - Somnolence [Unknown]
  - Off label use [Unknown]
  - Vertigo [Unknown]
  - Insomnia [Unknown]
